FAERS Safety Report 10672491 (Version 2)
Quarter: 2016Q2

REPORT INFORMATION
  Report Type: Spontaneous
  Country: US (occurrence: US)
  Receive Date: 20141223
  Receipt Date: 20160509
  Transmission Date: 20160815
  Serious: Yes (Other)
  Sender: FDA-Public Use
  Company Number: US-ELI_LILLY_AND_COMPANY-US201412006880

PATIENT
  Age: 53 Year
  Sex: Female

DRUGS (1)
  1. CYMBALTA [Suspect]
     Active Substance: DULOXETINE HYDROCHLORIDE
     Indication: DEPRESSION
     Dosage: UNK, UNKNOWN
     Route: 065
     Dates: start: 2011, end: 2012

REACTIONS (5)
  - Drug withdrawal syndrome [Unknown]
  - Agitation [Unknown]
  - Mood swings [Unknown]
  - Nightmare [Unknown]
  - Irritability [Unknown]

NARRATIVE: CASE EVENT DATE: 201212
